FAERS Safety Report 15130898 (Version 4)
Quarter: 2018Q4

REPORT INFORMATION
  Report Type: Spontaneous
  Country: US (occurrence: US)
  Receive Date: 20180711
  Receipt Date: 20181129
  Transmission Date: 20190204
  Serious: Yes (Other)
  Sender: FDA-Public Use
  Company Number: US-PFIZER INC-2018277879

PATIENT
  Age: 48 Year
  Sex: Male
  Weight: 118 kg

DRUGS (1)
  1. LYRICA [Suspect]
     Active Substance: PREGABALIN
     Indication: NEUROPATHY PERIPHERAL
     Dosage: 300 MG, 3X/DAY (TID)
     Route: 048

REACTIONS (4)
  - Wheelchair user [Unknown]
  - Prescribed overdose [Unknown]
  - Neuropathic arthropathy [Unknown]
  - Foot deformity [Unknown]

NARRATIVE: CASE EVENT DATE: 201805
